FAERS Safety Report 12452670 (Version 1)
Quarter: 2016Q2

REPORT INFORMATION
  Report Type: Spontaneous
  Country: US (occurrence: US)
  Receive Date: 20160609
  Receipt Date: 20160609
  Transmission Date: 20160815
  Serious: Yes (Hospitalization, Other)
  Sender: FDA-Public Use
  Company Number: US-GLAXOSMITHKLINE-US2016075241

PATIENT
  Sex: Female

DRUGS (6)
  1. FLOVENT HFA [Suspect]
     Active Substance: FLUTICASONE PROPIONATE
     Indication: ATRIAL FIBRILLATION
  2. TAZTIA XT [Concomitant]
     Active Substance: DILTIAZEM HYDROCHLORIDE
  3. WARFARIN [Concomitant]
     Active Substance: WARFARIN
  4. HYDROCHLOROTHIAZIDE. [Concomitant]
     Active Substance: HYDROCHLOROTHIAZIDE
  5. FLOVENT HFA [Suspect]
     Active Substance: FLUTICASONE PROPIONATE
     Indication: EMPHYSEMA
     Dosage: 2 PUFF(S), BID
     Route: 055
  6. ATENOLOL. [Concomitant]
     Active Substance: ATENOLOL

REACTIONS (4)
  - Hospitalisation [Unknown]
  - Product use issue [Unknown]
  - Syncope [Unknown]
  - Gait disturbance [Unknown]

NARRATIVE: CASE EVENT DATE: 2015
